FAERS Safety Report 9764484 (Version 4)
Quarter: 2018Q1

REPORT INFORMATION
  Report Type: Report from Study
  Country: BR (occurrence: BR)
  Receive Date: 20131217
  Receipt Date: 20180213
  Transmission Date: 20180509
  Serious: Yes (Hospitalization, Other)
  Sender: FDA-Public Use
  Company Number: BR-ROCHE-1318561

PATIENT
  Sex: Female
  Weight: 71 kg

DRUGS (12)
  1. ACTEMRA [Suspect]
     Active Substance: TOCILIZUMAB
     Indication: RHEUMATOID ARTHRITIS
     Dosage: LATEST INFUSION DATE: 04/DEC/2013.?MOST RECENT DOSE OF TOCILIZUMAB: 03/FEB/2016
     Route: 042
     Dates: start: 20100521
  2. ACTEMRA [Suspect]
     Active Substance: TOCILIZUMAB
     Dosage: LATEST INFUSION DATE: 04/DEC/2013.?MOST RECENT DOSE OF TOCILIZUMAB: 03/FEB/2016
     Route: 042
     Dates: start: 20180111
  3. CRESTOR [Concomitant]
     Active Substance: ROSUVASTATIN CALCIUM
  4. CALCIUM CARBONATE. [Concomitant]
     Active Substance: CALCIUM CARBONATE
  5. ACON [Concomitant]
  6. AAS [Concomitant]
     Active Substance: ASPIRIN
  7. ACETAMINOPHEN. [Concomitant]
     Active Substance: ACETAMINOPHEN
  8. ROSUVASTATIN. [Concomitant]
     Active Substance: ROSUVASTATIN
     Route: 065
  9. FOLIC ACID. [Concomitant]
     Active Substance: FOLIC ACID
  10. BETOPTIC S [Concomitant]
     Active Substance: BETAXOLOL HYDROCHLORIDE
  11. FAMOTIDINE. [Concomitant]
     Active Substance: FAMOTIDINE
  12. ACETYLSALICYLIC ACID [Concomitant]
     Active Substance: ASPIRIN

REACTIONS (7)
  - Weight increased [Unknown]
  - Hypertension [Not Recovered/Not Resolved]
  - Uterine prolapse [Recovered/Resolved]
  - Uterine disorder [Unknown]
  - Vision blurred [Not Recovered/Not Resolved]
  - Pain [Recovering/Resolving]
  - Chondropathy [Recovering/Resolving]
